FAERS Safety Report 5074147-3 (Version None)
Quarter: 2006Q3

REPORT INFORMATION
  Report Type: 
  Country: None (occurrence: None)
  Receive Date: 20060802
  Receipt Date: 20060725
  Transmission Date: 20061208
  Serious: Yes (Other)
  Sender: FDA-Public Use
  Company Number: 2006091493

PATIENT
  Sex: Female

DRUGS (1)
  1. XALATAN [Suspect]
     Indication: GLAUCOMA
     Dosage: ONCE DAILY AT BEDTIME, OPHTHALMIC
     Route: 047
     Dates: start: 20060716

REACTIONS (1)
  - BLOOD GLUCOSE INCREASED [None]
